FAERS Safety Report 6408275-4 (Version None)
Quarter: 2009Q4

REPORT INFORMATION
  Report Type: 
  Country: None (occurrence: None)
  Receive Date: 20091021
  Receipt Date: 20091009
  Transmission Date: 20100525
  Serious: Yes (Other)
  Sender: FDA-Public Use
  Company Number: US-PFIZER INC-2009259005

PATIENT
  Sex: Female

DRUGS (2)
  1. GEODON [Suspect]
     Indication: BIPOLAR DISORDER
     Dosage: 60 MG, 3X/DAY
     Dates: start: 20070101
  2. ALCOHOL [Interacting]

REACTIONS (2)
  - ALCOHOL ABUSE [None]
  - PANCREATITIS RELAPSING [None]
